FAERS Safety Report 17750584 (Version 1)
Quarter: 2020Q2

REPORT INFORMATION
  Report Type: Spontaneous
  Country: US (occurrence: US)
  Receive Date: 20200505
  Receipt Date: 20200505
  Transmission Date: 20200714
  Serious: Yes (Death)
  Sender: FDA-Public Use
  Company Number: None

PATIENT
  Age: 73 Year
  Sex: Male
  Weight: 72.4 kg

DRUGS (1)
  1. NEXAVAR [Suspect]
     Active Substance: SORAFENIB
     Dates: end: 20200406

REACTIONS (9)
  - Fatigue [None]
  - Lethargy [None]
  - Weight decreased [None]
  - Somnolence [None]
  - Therapy interrupted [None]
  - Confusional state [None]
  - Performance status decreased [None]
  - Malaise [None]
  - Ascites [None]

NARRATIVE: CASE EVENT DATE: 20200426
